FAERS Safety Report 9416210 (Version 1)
Quarter: 2013Q3

REPORT INFORMATION
  Report Type: Spontaneous
  Country: US (occurrence: US)
  Receive Date: 20130724
  Receipt Date: 20130724
  Transmission Date: 20140515
  Serious: No
  Sender: FDA-Public Use
  Company Number: US-BAYER-2013-087608

PATIENT
  Sex: Male

DRUGS (1)
  1. DESONATE GEL [Suspect]
     Dosage: UNK UNK, BID
     Dates: start: 20130708, end: 20130715

REACTIONS (4)
  - Application site erosion [None]
  - Application site dryness [None]
  - Application site pruritus [None]
  - Drug ineffective [None]
